FAERS Safety Report 7544308-X (Version None)
Quarter: 2011Q2

REPORT INFORMATION
  Report Type: 
  Country: None (occurrence: None)
  Receive Date: 20110613
  Receipt Date: 20071128
  Transmission Date: 20111010
  Serious: Yes (Other)
  Sender: FDA-Public Use
  Company Number: PHHO2007VE05884

PATIENT
  Sex: Female

DRUGS (3)
  1. DIOVAN HCT [Suspect]
     Dosage: 92.5 MG, QD
  2. CORASPIN [Concomitant]
     Dosage: 81 MG, UNK
  3. DIOVAN HCT [Suspect]
     Indication: HYPERTENSION
     Dosage: 92.5 MG, BID
     Route: 048

REACTIONS (5)
  - SENSATION OF PRESSURE [None]
  - TINNITUS [None]
  - HYPERTENSIVE CRISIS [None]
  - DISCOMFORT [None]
  - AMNESIA [None]
